FAERS Safety Report 5004950-7 (Version None)
Quarter: 2006Q1

REPORT INFORMATION
  Report Type: 
  Country: None (occurrence: None)
  Receive Date: 20060321
  Receipt Date: 20051228
  Transmission Date: 20060701
  Serious: No
  Sender: FDA-Public Use
  Company Number: YPA20060019

PATIENT
  Age: 77 Year
  Sex: Female

DRUGS (23)
  1. VESICARE [Suspect]
     Indication: HYPERTONIC BLADDER
     Dosage: 5 MG, UID/QD, ORAL
     Route: 048
     Dates: start: 20051201
  2. CLONIDINE [Concomitant]
  3. SPIRONOLACTONE [Concomitant]
  4. KLOR-CON [Concomitant]
  5. LASIX [Concomitant]
  6. PREMARIN [Concomitant]
  7. ZOLOFT [Concomitant]
  8. TRAZODONE HCL [Concomitant]
  9. BENICAR [Concomitant]
  10. CRESTOR [Concomitant]
  11. VITAMIN E [Concomitant]
  12. ASCORBIC ACID [Concomitant]
  13. OMEGA /AUT/(PROXYPHYLLINE, CRATAEGUS LAEVIGATA, CONVALLARIA MAJALIS) [Concomitant]
  14. DITROPAN [Concomitant]
  15. MINERALS NOS (MINERALS NOS) [Concomitant]
  16. CALCIUM CITRATE PLUS D (CALCIUM CITRATE, VITAMIN D NOS) [Concomitant]
  17. MSN (MUSCULAR SKELETAL SYSTEM) [Concomitant]
  18. GLUCOSAMINE AND CHONDRITIN (GLUCOSAMINE, CHONDROITIN SULFATE) [Concomitant]
  19. VITAMIN B COMPLEX (THIAMINE HYDROCHLORIDE, NICOTINAMIDE, CALCIUM PANTO [Concomitant]
  20. ASPIRIN [Concomitant]
  21. TYLENOL EXTRA-STRENGTH [Concomitant]
  22. IBUPROFEN [Concomitant]
  23. BENADRYL ^PFIZER WARNER-LAMBERT^ [Concomitant]

REACTIONS (1)
  - DRUG INEFFECTIVE [None]
